FAERS Safety Report 7821944-4 (Version None)
Quarter: 2011Q4

REPORT INFORMATION
  Report Type: 
  Country: None (occurrence: None)
  Receive Date: 20111018
  Receipt Date: 20101014
  Transmission Date: 20120403
  Serious: No
  Sender: FDA-Public Use
  Company Number: US-ASTRAZENECA-2010SE48679

PATIENT
  Age: 34 Year
  Sex: Male
  Weight: 86.2 kg

DRUGS (5)
  1. SYMBICORT [Suspect]
     Indication: ASTHMA
     Dosage: 1 PUFFS EVERY OTHER DAY
     Route: 055
     Dates: start: 20100101
  2. PROVENTIL [Concomitant]
  3. DIFLUCAN [Concomitant]
  4. SYMBICORT [Suspect]
     Dosage: 2 PUFFS BID
     Route: 055
  5. LAMICTAL [Concomitant]

REACTIONS (4)
  - GASTROOESOPHAGEAL REFLUX DISEASE [None]
  - HYPERSENSITIVITY [None]
  - VOMITING [None]
  - INAPPROPRIATE SCHEDULE OF DRUG ADMINISTRATION [None]
